FAERS Safety Report 22603643 (Version 1)
Quarter: 2023Q2

REPORT INFORMATION
  Report Type: Spontaneous
  Country: CN (occurrence: CN)
  Receive Date: 20230615
  Receipt Date: 20230615
  Transmission Date: 20230721
  Serious: Yes (Other)
  Sender: FDA-Public Use
  Company Number: CN-SA-SAC20230613000058

PATIENT
  Age: 69 Year
  Sex: Female

DRUGS (1)
  1. OXALIPLATIN [Suspect]
     Active Substance: OXALIPLATIN
     Indication: Colon cancer
     Dosage: 120 UNK, TOTAL
     Route: 041
     Dates: start: 20230606, end: 20230606

REACTIONS (5)
  - Papule [Recovering/Resolving]
  - Pruritus [Recovering/Resolving]
  - Tachypnoea [Recovering/Resolving]
  - Erythema [Recovering/Resolving]
  - Skin warm [Recovering/Resolving]

NARRATIVE: CASE EVENT DATE: 20230606
